FAERS Safety Report 7985281-X (Version None)
Quarter: 2011Q4

REPORT INFORMATION
  Report Type: 
  Country: None (occurrence: None)
  Receive Date: 20111216
  Receipt Date: 20111208
  Transmission Date: 20120403
  Serious: Yes (Death)
  Sender: FDA-Public Use
  Company Number: GB-ROCHE-1014735

PATIENT
  Sex: Female

DRUGS (14)
  1. LUCENTIS [Suspect]
     Indication: AGE-RELATED MACULAR DEGENERATION
     Route: 050
     Dates: start: 20091214, end: 20100429
  2. PARACETAMOL [Concomitant]
  3. HYPROMELLOSE [Concomitant]
  4. ALBUTEROL SULFATE AUTOHALER [Concomitant]
  5. ALBUTEROL SULFATE AUTOHALER [Concomitant]
  6. IVABRADINE [Concomitant]
  7. VALPROATE SODIUM [Concomitant]
  8. CETIRIZINE HCL [Concomitant]
  9. VENLAFAXINE [Concomitant]
  10. SULFASALAZINE [Concomitant]
  11. RAMIPRIL [Concomitant]
  12. LACTULOSE [Concomitant]
  13. RANITIDINE [Concomitant]
  14. TIOTROPIUM [Concomitant]

REACTIONS (1)
  - DEATH [None]
